FAERS Safety Report 19930422 (Version 1)
Quarter: 2021Q4

REPORT INFORMATION
  Report Type: Spontaneous
  Country: RU (occurrence: RU)
  Receive Date: 20211008
  Receipt Date: 20211008
  Transmission Date: 20220303
  Serious: Yes (Hospitalization)
  Sender: FDA-Public Use
  Company Number: RU-002147023-NVSC2021RU220693

PATIENT
  Age: 43 Year
  Sex: Male

DRUGS (1)
  1. LUCENTIS [Suspect]
     Active Substance: RANIBIZUMAB
     Indication: Visual acuity reduced
     Route: 031
     Dates: start: 20210908, end: 20210908

REACTIONS (4)
  - Endophthalmitis [Recovering/Resolving]
  - Visual impairment [Unknown]
  - Ocular hyperaemia [Unknown]
  - Uveitis [Recovering/Resolving]

NARRATIVE: CASE EVENT DATE: 20210909
